FAERS Safety Report 17396159 (Version 1)
Quarter: 2020Q1

REPORT INFORMATION
  Report Type: Spontaneous
  Country: US (occurrence: US)
  Receive Date: 20200124
  Receipt Date: 20200124
  Transmission Date: 20200409
  Serious: No
  Sender: FDA-Public Use
  Company Number: None

PATIENT
  Sex: Female

DRUGS (1)
  1. STELARA [Suspect]
     Active Substance: USTEKINUMAB
     Dosage: ?          OTHER FREQUENCY:8 WEEKS ;?
     Route: 058
     Dates: start: 201910

REACTIONS (3)
  - Pregnancy [None]
  - Weight increased [None]
  - Exposure during pregnancy [None]
